FAERS Safety Report 7642214-3 (Version None)
Quarter: 2011Q3

REPORT INFORMATION
  Report Type: 
  Country: None (occurrence: None)
  Receive Date: 20110728
  Receipt Date: 20110719
  Transmission Date: 20111222
  Serious: Yes (Other)
  Sender: FDA-Public Use
  Company Number: PHHY2011NZ38585

PATIENT
  Age: 30 Year
  Sex: Female

DRUGS (2)
  1. CLOZAPINE [Suspect]
     Dosage: 25 MG, UNK
     Route: 061
     Dates: start: 20110201, end: 20110501
  2. CLOZAPINE [Suspect]
     Dosage: 100 MG, UNK
     Route: 061
     Dates: start: 20110201, end: 20110501

REACTIONS (1)
  - BLOOD DISORDER [None]
